FAERS Safety Report 25634927 (Version 4)
Quarter: 2025Q3

REPORT INFORMATION
  Report Type: Spontaneous
  Country: JP (occurrence: JP)
  Receive Date: 20250801
  Receipt Date: 20250827
  Transmission Date: 20251021
  Serious: Yes (Other)
  Sender: AMGEN
  Company Number: JP-KYOWAKIRIN-2025KK013970

PATIENT
  Age: 8 Decade
  Sex: Male

DRUGS (2)
  1. DARBEPOETIN ALFA [Suspect]
     Active Substance: DARBEPOETIN ALFA
     Indication: Nephrogenic anaemia
     Dosage: UNK UNK, QWK
     Route: 010
     Dates: start: 20250701
  2. DARBEPOETIN ALFA [Suspect]
     Active Substance: DARBEPOETIN ALFA
     Dosage: 180 UG, 1X/WEEK
     Route: 010
     Dates: end: 20250715

REACTIONS (1)
  - Aplasia pure red cell [Recovering/Resolving]

NARRATIVE: CASE EVENT DATE: 20250701
